FAERS Safety Report 5502473-X (Version None)
Quarter: 2007Q4

REPORT INFORMATION
  Report Type: 
  Country: None (occurrence: None)
  Receive Date: 20071030
  Receipt Date: 20071018
  Transmission Date: 20080405
  Serious: Yes (Hospitalization)
  Sender: FDA-Public Use
  Company Number: GB-PFIZER INC-2007087897

PATIENT
  Sex: Male

DRUGS (12)
  1. CHAMPIX [Suspect]
     Indication: SMOKING CESSATION THERAPY
     Route: 048
  2. GLYCERYL TRINITRATE [Concomitant]
  3. DILTIAZEM [Concomitant]
  4. SIMVASTATIN [Concomitant]
  5. ASPIRIN [Concomitant]
  6. LANSOPRAZOLE [Concomitant]
  7. QUININE SULFATE [Concomitant]
  8. RAMIPRIL [Concomitant]
  9. ALENDRONIC ACID [Concomitant]
  10. PREDNISOLONE [Concomitant]
  11. SERETIDE [Concomitant]
     Route: 055
  12. ALL OTHER THERAPEUTIC PRODUCTS [Concomitant]
     Route: 055

REACTIONS (3)
  - AMNESIA [None]
  - CIRCULATORY COLLAPSE [None]
  - HEAD BANGING [None]
